FAERS Safety Report 9060464 (Version 2)
Quarter: 2013Q3

REPORT INFORMATION
  Report Type: Spontaneous
  Country: US (occurrence: US)
  Receive Date: 20130212
  Receipt Date: 20130709
  Transmission Date: 20140515
  Serious: No
  Sender: FDA-Public Use
  Company Number: US-PFIZER INC-2013053931

PATIENT
  Age: 46 Year
  Sex: Female
  Weight: 83.45 kg

DRUGS (11)
  1. GABAPENTIN [Suspect]
     Indication: NERVE INJURY
     Dosage: UNK
  2. GABAPENTIN [Suspect]
     Indication: FIBROMYALGIA
  3. LYRICA [Suspect]
     Indication: NEURALGIA
     Dosage: 100 MG, 3X/DAY
     Route: 048
     Dates: start: 20130111, end: 201301
  4. LYRICA [Suspect]
     Indication: NERVE INJURY
     Dosage: 100 MG, 3X/DAY
     Dates: start: 201302
  5. LYRICA [Suspect]
     Indication: FIBROMYALGIA
     Dosage: 100 MG, 4X/DAY
     Dates: start: 2013
  6. NEURONTIN [Suspect]
     Indication: NEURALGIA
     Dosage: 800 MG, 3X/DAY
     Dates: start: 201301, end: 20130207
  7. TRAMADOL [Concomitant]
     Dosage: 50 MG, UNK
  8. SOMA [Concomitant]
     Dosage: 325 MG, UNK
  9. XANAX [Concomitant]
     Dosage: 1 MG, 1X/DAY
  10. CELEXA [Concomitant]
     Dosage: 40 MG, 1X/DAY
  11. HYDROCHLOROTHIAZIDE [Concomitant]
     Dosage: UNK, 2X/DAY

REACTIONS (4)
  - Feeling abnormal [Unknown]
  - Pain [Unknown]
  - Paraesthesia [Unknown]
  - Drug ineffective [Unknown]
